FAERS Safety Report 5998087-8 (Version None)
Quarter: 2008Q4

REPORT INFORMATION
  Report Type: 
  Country: None (occurrence: None)
  Receive Date: 20081213
  Receipt Date: 20080618
  Transmission Date: 20090506
  Serious: No
  Sender: FDA-Public Use
  Company Number: US-AMGEN-KDL288215

PATIENT
  Sex: Female

DRUGS (3)
  1. ENBREL [Suspect]
     Indication: PSORIATIC ARTHROPATHY
     Route: 058
     Dates: start: 20070829
  2. ENBREL [Suspect]
     Indication: PSORIASIS
  3. METHOTREXATE [Concomitant]

REACTIONS (7)
  - DRUG INEFFECTIVE [None]
  - INSOMNIA [None]
  - JOINT SWELLING [None]
  - MUSCLE SWELLING [None]
  - MUSCULOSKELETAL PAIN [None]
  - ORAL HERPES [None]
  - PAIN IN EXTREMITY [None]
